FAERS Safety Report 23605471 (Version 5)
Quarter: 2024Q4

REPORT INFORMATION
  Report Type: Spontaneous
  Country: US (occurrence: US)
  Receive Date: 20240307
  Receipt Date: 20241114
  Transmission Date: 20250114
  Serious: Yes (Hospitalization, Other)
  Sender: SANOFI AVENTIS
  Company Number: US-SA-2024SA074444

PATIENT
  Sex: Male
  Weight: 149.09 kg

DRUGS (5)
  1. ELOCTATE [Suspect]
     Active Substance: EFMOROCTOCOG ALFA
     Indication: Factor VIII deficiency
     Dosage: 10000 U (9500-10500), BIW
     Route: 042
     Dates: start: 202012
  2. ELOCTATE [Suspect]
     Active Substance: EFMOROCTOCOG ALFA
     Indication: Factor VIII deficiency
     Dosage: 10000 U (9500-10500), BIW
     Route: 042
     Dates: start: 202012
  3. ELOCTATE [Suspect]
     Active Substance: EFMOROCTOCOG ALFA
     Dosage: 10000 U, PRN
     Route: 042
     Dates: start: 202012
  4. ELOCTATE [Suspect]
     Active Substance: EFMOROCTOCOG ALFA
     Dosage: 10000 U, PRN
     Route: 042
     Dates: start: 202012
  5. HEMLIBRA [Concomitant]
     Active Substance: EMICIZUMAB-KXWH
     Indication: Factor VIII deficiency
     Dosage: INJECT 714 MG (4.76 ML) SUBCUTANEOUSLY DIVIDED INTO 3 INJECTIONS OF 1.59 ML EVERY 4 WEEKS FOR MAINTE

REACTIONS (5)
  - Substance abuse [Unknown]
  - Depression [Unknown]
  - Haemarthrosis [Unknown]
  - Weight increased [Unknown]
  - Haemorrhage [Recovered/Resolved]

NARRATIVE: CASE EVENT DATE: 20240101
